FAERS Safety Report 7654552-9 (Version None)
Quarter: 2011Q3

REPORT INFORMATION
  Report Type: 
  Country: None (occurrence: None)
  Receive Date: 20110803
  Receipt Date: 20110728
  Transmission Date: 20111222
  Serious: Yes (Hospitalization, Other)
  Sender: FDA-Public Use
  Company Number: US-MERCK-1107USA02315

PATIENT
  Age: 80 Year
  Sex: Female

DRUGS (8)
  1. METOPROLOL TARTRATE [Concomitant]
     Route: 065
  2. LANTUS [Concomitant]
     Route: 065
     Dates: start: 20110405, end: 20110608
  3. JANUVIA [Suspect]
     Indication: DIABETES MELLITUS
     Route: 048
     Dates: start: 20070401, end: 20110615
  4. ARMOUR THYROID TABLETS [Concomitant]
     Route: 065
  5. VITAMIN D (UNSPECIFIED) [Concomitant]
     Route: 065
  6. ACTOS [Concomitant]
     Route: 065
  7. JANUVIA [Suspect]
     Route: 048
     Dates: start: 20110701
  8. CALCIUM (UNSPECIFIED) [Concomitant]
     Route: 065

REACTIONS (5)
  - HIP FRACTURE [None]
  - BLOOD GLUCOSE INCREASED [None]
  - FEMUR FRACTURE [None]
  - ARTHRALGIA [None]
  - JOINT SWELLING [None]
